FAERS Safety Report 8890129 (Version 1)
Quarter: 2012Q4

REPORT INFORMATION
  Report Type: Spontaneous
  Country: US (occurrence: None)
  Receive Date: 20121105
  Receipt Date: 20121105
  Transmission Date: 20130627
  Serious: Yes (Hospitalization)
  Sender: FDA-Public Use
  Company Number: None

PATIENT
  Age: 78 Year
  Sex: Female

DRUGS (2)
  1. BACTRIM [Suspect]
  2. GLUCOVANCE [Suspect]
     Dosage: 1 tablet once daily po
     Route: 048

REACTIONS (9)
  - Thrombocytopenia [None]
  - White blood cell count increased [None]
  - Haemoglobin increased [None]
  - Haematocrit increased [None]
  - Hypovolaemia [None]
  - Haemoconcentration [None]
  - Lymphoproliferative disorder [None]
  - Autoimmune disorder [None]
  - Infection [None]
